FAERS Safety Report 10243543 (Version 2)
Quarter: 2014Q2

REPORT INFORMATION
  Report Type: Not Available
  Country: US (occurrence: US)
  Receive Date: 20140618
  Receipt Date: 20140618
  Transmission Date: 20141212
  Serious: No
  Sender: FDA-Public Use
  Company Number: US-LUPIN PHARMACEUTICALS INC.-E2B_00001979

PATIENT
  Sex: Male
  Weight: 90.8 kg

DRUGS (3)
  1. LISINOPRIL TABLETS USP 20 MG [Suspect]
     Indication: HYPERTENSION
     Dates: start: 2012
  2. LORATADINE + PSEUDOEPHEDRINE (CLARITIN D) [Concomitant]
     Indication: HYPERSENSITIVITY
  3. BECLOMETASONE DIPROPIONATE (BECONASE) [Concomitant]
     Indication: HYPERSENSITIVITY
     Route: 045

REACTIONS (1)
  - Headache [Recovered/Resolved]
